FAERS Safety Report 20906246 (Version 1)
Quarter: 2022Q2

REPORT INFORMATION
  Report Type: Spontaneous
  Country: US (occurrence: None)
  Receive Date: 20220602
  Receipt Date: 20220602
  Transmission Date: 20220720
  Serious: No
  Sender: FDA-Public Use
  Company Number: None

PATIENT
  Age: 35 Year
  Sex: Male
  Weight: 89 kg

DRUGS (1)
  1. NALTREXONE [Suspect]
     Active Substance: NALTREXONE
     Dates: start: 20220121, end: 20220502

REACTIONS (5)
  - Nausea [None]
  - Vomiting [None]
  - Dizziness [None]
  - Vision blurred [None]
  - Retinal artery occlusion [None]

NARRATIVE: CASE EVENT DATE: 20220502
